FAERS Safety Report 5675016-8 (Version None)
Quarter: 2008Q1

REPORT INFORMATION
  Report Type: 
  Country: None (occurrence: None)
  Receive Date: 20080320
  Receipt Date: 20080312
  Transmission Date: 20080703
  Serious: Yes (Life-Threatening, Hospitalization, Disabling)
  Sender: FDA-Public Use
  Company Number: US-AVENTIS-200811114EU

PATIENT
  Age: 77 Year
  Sex: Male
  Weight: 54 kg

DRUGS (25)
  1. LASIX [Suspect]
     Indication: PLEURAL EFFUSION
     Route: 048
     Dates: start: 20051216, end: 20051227
  2. ENBREL [Suspect]
     Indication: RHEUMATOID ARTHRITIS
     Route: 058
     Dates: start: 20051129, end: 20060113
  3. ENBREL [Suspect]
     Route: 058
     Dates: start: 20060223, end: 20060314
  4. GASMOTIN [Concomitant]
     Route: 048
  5. SEFTAC [Concomitant]
     Route: 048
  6. TAKEPRON [Concomitant]
     Route: 048
  7. LANDEL [Concomitant]
     Route: 048
  8. CALCITRIOL [Concomitant]
     Route: 048
  9. CALCIUM LACTATE [Concomitant]
     Route: 048
  10. BIOFERMIN [Concomitant]
     Route: 048
  11. ISCOTIN                            /00030201/ [Concomitant]
     Route: 048
  12. PYRIDOXAL [Concomitant]
     Route: 048
  13. GRIMAC [Concomitant]
     Route: 048
  14. BACTRIM [Concomitant]
     Route: 048
  15. URAPIDIL [Concomitant]
     Route: 048
  16. NITRODERM [Concomitant]
     Route: 062
  17. SODIUM BICARBONATE [Concomitant]
     Route: 048
  18. EBRANTIL                           /00631801/ [Concomitant]
     Route: 048
  19. PREDNISOLONE [Concomitant]
     Indication: RHEUMATOID ARTHRITIS
     Route: 048
     Dates: end: 20050101
  20. PREDNISOLONE [Concomitant]
     Route: 048
     Dates: start: 20050101
  21. DIMETHYL SULFOXIDE [Concomitant]
  22. ALBUMIN (HUMAN) [Concomitant]
     Route: 042
  23. SANGLOPOR                          /00025201/ [Concomitant]
     Route: 042
  24. CARBIDOPA AND LEVODOPA [Concomitant]
     Route: 048
  25. ADALAT [Concomitant]
     Route: 048

REACTIONS (2)
  - CONDITION AGGRAVATED [None]
  - RENAL FAILURE [None]
